FAERS Safety Report 18588423 (Version 1)
Quarter: 2020Q4

REPORT INFORMATION
  Report Type: Spontaneous
  Country: US (occurrence: US)
  Receive Date: 20201207
  Receipt Date: 20201207
  Transmission Date: 20210114
  Serious: No
  Sender: FDA-Public Use
  Company Number: US-SIGMAPHARM LABORATORIES, LLC-2020SIG00099

PATIENT
  Age: 68 Year
  Sex: Female
  Weight: 58.05 kg

DRUGS (7)
  1. TURMERIC [Concomitant]
     Active Substance: HERBALS\TURMERIC
     Dosage: UNK
  2. VITAMIN D3 [Concomitant]
     Active Substance: CHOLECALCIFEROL
  3. LIOTHYRONINE SODIUM. [Suspect]
     Active Substance: LIOTHYRONINE SODIUM
     Dosage: 5 MCG, 2X/DAY, 0500 AND 1700
     Route: 048
     Dates: start: 20200822, end: 20200910
  4. VITAMIN B COMPLEX [Concomitant]
     Active Substance: CYANOCOBALAMIN\DEXPANTHENOL\NIACINAMIDE\PYRIDOXINE HYDROCHLORIDE\RIBOFLAVIN 5^-PHOSPHATE SODIUM\THIAMINE HYDROCHLORIDE\VITAMIN B COMPLEX
  5. LIOTHYRONINE SODIUM. [Suspect]
     Active Substance: LIOTHYRONINE SODIUM
     Indication: HYPOTHYROIDISM
     Dosage: UNK
     Dates: start: 2014, end: 2014
  6. LIOTHYRONINE SODIUM. [Suspect]
     Active Substance: LIOTHYRONINE SODIUM
     Indication: HYPOTHYROIDISM
     Dosage: 5 MCG, 2X/DAY, 0500 AND 1700
     Route: 048
     Dates: start: 202007, end: 202008
  7. MAGNESIUM [Concomitant]
     Active Substance: MAGNESIUM

REACTIONS (12)
  - Tremor [Recovered/Resolved]
  - Anxiety [Recovered/Resolved]
  - Wheezing [Not Recovered/Not Resolved]
  - Inappropriate schedule of product administration [Recovered/Resolved]
  - Tachycardia [Not Recovered/Not Resolved]
  - Respiratory rate increased [Not Recovered/Not Resolved]
  - Malaise [Not Recovered/Not Resolved]
  - Allergic reaction to excipient [Not Recovered/Not Resolved]
  - Dyspnoea [Not Recovered/Not Resolved]
  - Product substitution issue [Recovered/Resolved]
  - Palpitations [Not Recovered/Not Resolved]
  - Insomnia [Recovered/Resolved]

NARRATIVE: CASE EVENT DATE: 2014
